FAERS Safety Report 16556473 (Version 1)
Quarter: 2019Q3

REPORT INFORMATION
  Report Type: Report from Study
  Country: None (occurrence: US)
  Receive Date: 20190710
  Receipt Date: 20190710
  Transmission Date: 20191004
  Serious: Yes (Hospitalization)
  Sender: FDA-Public Use
  Company Number: US-ABBVIE-19K-163-2811943-00

PATIENT
  Age: 68 Year
  Sex: Male
  Weight: 54.93 kg

DRUGS (2)
  1. HUMIRA [Suspect]
     Active Substance: ADALIMUMAB
     Indication: CROHN^S DISEASE
     Route: 058
     Dates: start: 2010
  2. PREDNISONE. [Concomitant]
     Active Substance: PREDNISONE
     Indication: CONDITION AGGRAVATED

REACTIONS (3)
  - Injection site pain [Not Recovered/Not Resolved]
  - Intussusception [Recovered/Resolved]
  - Abdominal mass [Recovered/Resolved]
